FAERS Safety Report 23101418 (Version 1)
Quarter: 2023Q4

REPORT INFORMATION
  Report Type: Report from Study
  Country: US (occurrence: US)
  Receive Date: 20231024
  Receipt Date: 20231024
  Transmission Date: 20240110
  Serious: Yes (Other)
  Sender: FDA-Public Use
  Company Number: US-ABBVIE-5458873

PATIENT
  Age: 62 Year
  Sex: Male

DRUGS (1)
  1. VENCLEXTA [Suspect]
     Active Substance: VENETOCLAX
     Indication: Myelodysplastic syndrome with excess blasts
     Route: 048
     Dates: start: 202303, end: 202307

REACTIONS (2)
  - Bone marrow transplant [Unknown]
  - Bone marrow transplant [Unknown]

NARRATIVE: CASE EVENT DATE: 20230801
